FAERS Safety Report 12225380 (Version 2)
Quarter: 2016Q2

REPORT INFORMATION
  Report Type: Spontaneous
  Country: US (occurrence: US)
  Receive Date: 20160331
  Receipt Date: 20160406
  Transmission Date: 20160815
  Serious: No
  Sender: FDA-Public Use
  Company Number: US-GLAXOSMITHKLINE-US2016043516

PATIENT
  Age: 37 Year
  Sex: Female

DRUGS (1)
  1. ABREVA [Suspect]
     Active Substance: DOCOSANOL
     Indication: ORAL HERPES
     Dosage: UNK
     Dates: start: 20160324, end: 20160328

REACTIONS (3)
  - Condition aggravated [Unknown]
  - Rash erythematous [Not Recovered/Not Resolved]
  - Oral herpes [Unknown]

NARRATIVE: CASE EVENT DATE: 20160325
